FAERS Safety Report 4501676-0 (Version None)
Quarter: 2004Q4

REPORT INFORMATION
  Report Type: 
  Country: None (occurrence: None)
  Receive Date: 20041116
  Receipt Date: 20041104
  Transmission Date: 20050328
  Serious: Yes (Other)
  Sender: FDA-Public Use
  Company Number: FR-JNJFOC-20040201339

PATIENT
  Age: 25 Year
  Sex: Female
  Weight: 55 kg

DRUGS (8)
  1. REMICADE [Suspect]
     Route: 042
  2. REMICADE [Suspect]
     Route: 042
  3. REMICADE [Suspect]
     Route: 042
  4. REMICADE [Suspect]
     Route: 042
  5. REMICADE [Suspect]
     Route: 042
  6. REMICADE [Suspect]
     Indication: ANKYLOSING SPONDYLITIS
     Route: 042
  7. VIOXX [Concomitant]
     Indication: ANKYLOSING SPONDYLITIS
     Route: 049
  8. EUPANTOL [Concomitant]
     Route: 049

REACTIONS (3)
  - ASTHMA [None]
  - HYPERVENTILATION [None]
  - PYREXIA [None]
